FAERS Safety Report 19358978 (Version 2)
Quarter: 2021Q2

REPORT INFORMATION
  Report Type: Report from Study
  Country: US (occurrence: US)
  Receive Date: 20210601
  Receipt Date: 20210602
  Transmission Date: 20210717
  Serious: Yes (Other)
  Sender: FDA-Public Use
  Company Number: US-ROCHE-2836915

PATIENT
  Age: 66 Year
  Sex: Male
  Weight: 74.3 kg

DRUGS (6)
  1. ACYCLOVIR. [Concomitant]
     Active Substance: ACYCLOVIR
     Route: 048
     Dates: start: 20200716, end: 20210107
  2. OBINUTUZUMAB. [Suspect]
     Active Substance: OBINUTUZUMAB
     Indication: FOLLICULAR LYMPHOMA
     Dosage: MOST RECENT DOSE PRIOR TO SAE ON 11/MAR/2021
     Route: 042
     Dates: start: 20200716
  3. ALLOPURINOL. [Concomitant]
     Active Substance: ALLOPURINOL
     Route: 048
     Dates: start: 20200716, end: 20210107
  4. PEPTO?BISMOL [Concomitant]
     Active Substance: BISMUTH SUBSALICYLATE
     Indication: ABDOMINAL DISCOMFORT
     Route: 048
     Dates: start: 20210107
  5. VENETOCLAX. [Suspect]
     Active Substance: VENETOCLAX
     Indication: FOLLICULAR LYMPHOMA
     Dosage: MOST RECENT DOSE PRIOR TO SAE ON 13/DEC/2020
     Route: 065
     Dates: start: 20200716
  6. BENDAMUSTINE [Suspect]
     Active Substance: BENDAMUSTINE
     Indication: FOLLICULAR LYMPHOMA
     Dosage: MOST RECENT DOSE PRIOR TO SAE ON 04/DEC/2020
     Route: 065
     Dates: start: 20200716

REACTIONS (1)
  - Immune-mediated lung disease [Recovered/Resolved with Sequelae]

NARRATIVE: CASE EVENT DATE: 20210518
